FAERS Safety Report 11876631 (Version 6)
Quarter: 2017Q3

REPORT INFORMATION
  Report Type: Report from Study
  Country: BR (occurrence: BR)
  Receive Date: 20151229
  Receipt Date: 20170719
  Transmission Date: 20171127
  Serious: Yes (Hospitalization, Other)
  Sender: FDA-Public Use
  Company Number: PHHY2015BR170334

PATIENT
  Age: 12 Year
  Sex: Male
  Weight: 49 kg

DRUGS (5)
  1. HYDREA [Concomitant]
     Active Substance: HYDROXYUREA
     Indication: SICKLE CELL ANAEMIA
     Dosage: 2 DF, QD
     Route: 048
  2. EXJADE [Suspect]
     Active Substance: DEFERASIROX
     Dosage: 20 MG/KG, QD (2 DF OF 500 MG)/1000 MG
     Route: 048
  3. HYDROXYUREA. [Concomitant]
     Active Substance: HYDROXYUREA
     Indication: SICKLE CELL ANAEMIA
     Dosage: 2 DF, QD
     Route: 048
  4. FOLATE [Concomitant]
     Active Substance: FOLATE SODIUM
     Indication: SICKLE CELL ANAEMIA
     Dosage: 1 DF, QD
     Route: 048
  5. EXJADE [Suspect]
     Active Substance: DEFERASIROX
     Indication: SICKLE CELL ANAEMIA
     Dosage: 15 MG/KG, QD (1 DF: 500 MG)
     Route: 048

REACTIONS (17)
  - Gait inability [Unknown]
  - Cerebrovascular accident [Recovering/Resolving]
  - Speech disorder [Unknown]
  - Chromaturia [Unknown]
  - Seizure [Unknown]
  - Urinary incontinence [Unknown]
  - Moyamoya disease [Unknown]
  - Hypercoagulation [Unknown]
  - Serum ferritin increased [Unknown]
  - Abdominal pain [Unknown]
  - Vascular fragility [Unknown]
  - Dysuria [Unknown]
  - Oxygen saturation decreased [Unknown]
  - Cholelithiasis [Recovered/Resolved]
  - Eye colour change [Unknown]
  - Vasodilatation [Unknown]
  - Ischaemic stroke [Not Recovered/Not Resolved]

NARRATIVE: CASE EVENT DATE: 2014
